FAERS Safety Report 5501095-4 (Version None)
Quarter: 2007Q4

REPORT INFORMATION
  Report Type: 
  Country: None (occurrence: None)
  Receive Date: 20071029
  Receipt Date: 20071019
  Transmission Date: 20080405
  Serious: Yes (Other)
  Sender: FDA-Public Use
  Company Number: US-ABBOTT-07P-163-0421514-00

PATIENT
  Age: 35 Year
  Sex: Female

DRUGS (5)
  1. NORVIR [Suspect]
     Indication: SYSTEMIC ANTIVIRAL TREATMENT
     Route: 048
     Dates: start: 20061101
  2. LAMIVUDINE + ZIDOVUDINE [Suspect]
     Indication: SYSTEMIC ANTIVIRAL TREATMENT
     Route: 048
     Dates: start: 20060614
  3. ATAZANAVIR SULFATE [Suspect]
     Indication: SYSTEMIC ANTIVIRAL TREATMENT
     Route: 048
     Dates: start: 20061101
  4. FOLATE SUPPLEMENT [Concomitant]
     Indication: VITAMIN SUPPLEMENTATION
  5. ACYCLOVIR [Concomitant]
     Indication: DRUG USE FOR UNKNOWN INDICATION

REACTIONS (1)
  - BLIGHTED OVUM [None]
